FAERS Safety Report 12870880 (Version 3)
Quarter: 2016Q4

REPORT INFORMATION
  Report Type: Spontaneous
  Country: JP (occurrence: JP)
  Receive Date: 20161021
  Receipt Date: 20161101
  Transmission Date: 20170207
  Serious: Yes (Death, Hospitalization, Other)
  Sender: FDA-Public Use
  Company Number: JP-PFIZER INC-2016487752

PATIENT
  Age: 4 Decade
  Sex: Male

DRUGS (1)
  1. AMIODARONE HCL [Suspect]
     Active Substance: AMIODARONE HYDROCHLORIDE
     Indication: VENTRICULAR TACHYCARDIA
     Dosage: 100 MG, UNK
     Route: 048

REACTIONS (5)
  - Hyperthyroidism [Unknown]
  - Cardiac arrest [Unknown]
  - Hyperkalaemia [Unknown]
  - Pneumonia [Fatal]
  - Respiratory disorder [Fatal]
